FAERS Safety Report 5029365-7 (Version None)
Quarter: 2006Q2

REPORT INFORMATION
  Report Type: 
  Country: None (occurrence: None)
  Receive Date: 20060614
  Receipt Date: 20060602
  Transmission Date: 20061013
  Serious: Yes (Other)
  Sender: FDA-Public Use
  Company Number: TRP_0789_2006

PATIENT
  Age: 48 Year
  Sex: Female
  Weight: 58.9676 kg

DRUGS (6)
  1. RIBASPHERE [Suspect]
     Indication: HEPATITIS C
     Dosage: 800 MG QDAY PO
     Route: 048
     Dates: start: 20050715, end: 20060414
  2. PEG-INTRON [Suspect]
     Indication: HEPATITIS C
     Dosage: 80 MCG QWK SC
     Route: 058
     Dates: start: 20050715, end: 20060414
  3. ATIVAN [Concomitant]
  4. FOSAMAX [Concomitant]
  5. NORVASC [Concomitant]
  6. ZOLOFT [Concomitant]

REACTIONS (33)
  - ALOPECIA [None]
  - ASTHENIA [None]
  - BLOOD GLUCOSE INCREASED [None]
  - COUGH [None]
  - DEPRESSION [None]
  - DRY SKIN [None]
  - DRY THROAT [None]
  - DYSPNOEA [None]
  - EAR PAIN [None]
  - EMOTIONAL DISORDER [None]
  - FATIGUE [None]
  - FUNGAL INFECTION [None]
  - HAEMATOCRIT DECREASED [None]
  - HAEMOGLOBIN DECREASED [None]
  - HEADACHE [None]
  - HYPERTENSION [None]
  - HYPOAESTHESIA [None]
  - INSOMNIA [None]
  - LOSS OF EMPLOYMENT [None]
  - MEMORY IMPAIRMENT [None]
  - PAIN [None]
  - PALLOR [None]
  - PAROSMIA [None]
  - PRURITUS [None]
  - RASH [None]
  - RED BLOOD CELL COUNT DECREASED [None]
  - SUICIDAL IDEATION [None]
  - THIRST [None]
  - THROAT IRRITATION [None]
  - TREMOR [None]
  - VOMITING [None]
  - WEIGHT DECREASED [None]
  - WHITE BLOOD CELL COUNT DECREASED [None]
